FAERS Safety Report 9167962 (Version 1)
Quarter: 2013Q1

REPORT INFORMATION
  Report Type: Spontaneous
  Country: IN (occurrence: None)
  Receive Date: 20130307
  Receipt Date: 20130307
  Transmission Date: 20140127
  Serious: Yes (Hospitalization)
  Sender: FDA-Public Use
  Company Number: IMP_06586_2013

PATIENT
  Age: 63 Year
  Sex: Male

DRUGS (6)
  1. CHLOROQUINE [Suspect]
     Dosage: (DF)
     Route: 048
  2. CHLOROQUINE [Suspect]
     Dosage: (DF)
     Route: 048
  3. PARACETAMOL (PARACETAMOL) [Suspect]
     Dosage: (DF)
  4. PARACETAMOL (PARACETAMOL) [Suspect]
     Dosage: (DF)
  5. PIPERACILLIN/ TAZOBACTAM [Suspect]
     Dosage: (DF)
     Route: 042
  6. METRONIDAZOLE (METRONIDAZOLE) [Suspect]
     Dosage: (DF)
     Route: 042

REACTIONS (16)
  - Abdominal pain [None]
  - Diarrhoea [None]
  - Hepatomegaly [None]
  - Liver tenderness [None]
  - Liver abscess [None]
  - Posturing [None]
  - Foaming at mouth [None]
  - Loss of consciousness [None]
  - Ventricular tachycardia [None]
  - Haemodynamic instability [None]
  - Sepsis [None]
  - Hypokalaemia [None]
  - Haemoglobin decreased [None]
  - Alanine aminotransferase increased [None]
  - Blood albumin decreased [None]
  - Prothrombin time prolonged [None]
